FAERS Safety Report 9897274 (Version 1)
Quarter: 2014Q1

REPORT INFORMATION
  Report Type: Report from Study
  Country: DK (occurrence: DK)
  Receive Date: 20140214
  Receipt Date: 20140214
  Transmission Date: 20141002
  Serious: Yes (Death, Other)
  Sender: FDA-Public Use
  Company Number: DK-ROCHE-1346156

PATIENT
  Sex: 0

DRUGS (4)
  1. BEVACIZUMAB [Suspect]
     Indication: GLIOBLASTOMA MULTIFORME
     Route: 065
  2. IRINOTECAN [Suspect]
     Indication: GLIOBLASTOMA MULTIFORME
     Route: 065
  3. TEMOZOLOMIDE [Suspect]
     Indication: GLIOBLASTOMA MULTIFORME
     Dosage: FOR 5 DAYS FOLLOWED BY 23 DAYS OFF
     Route: 065
  4. TEMOZOLOMIDE [Suspect]
     Route: 065

REACTIONS (7)
  - Febrile neutropenia [Fatal]
  - Thrombosis [Unknown]
  - Hypertension [Unknown]
  - Fatigue [Unknown]
  - Granulocytopenia [Unknown]
  - Lymphopenia [Unknown]
  - Thrombocytopenia [Unknown]
